FAERS Safety Report 4275541-0 (Version None)
Quarter: 2004Q1

REPORT INFORMATION
  Report Type: 
  Country: None (occurrence: None)
  Receive Date: 20040121
  Receipt Date: 20010226
  Transmission Date: 20041129
  Serious: Yes (Hospitalization)
  Sender: FDA-Public Use
  Company Number: 10728285

PATIENT
  Age: 61 Year
  Sex: Female

DRUGS (11)
  1. GATIFLOXACIN [Suspect]
     Route: 048
     Dates: start: 20010212
  2. ATORVASTATIN [Suspect]
     Route: 048
     Dates: start: 20010126
  3. RAMIPRIL [Concomitant]
     Route: 048
     Dates: start: 20010118
  4. GLYBURIDE [Concomitant]
     Route: 048
     Dates: start: 19810101
  5. METFORMIN HCL [Concomitant]
     Route: 048
     Dates: start: 19810101
  6. FUROSEMIDE [Concomitant]
     Route: 048
     Dates: start: 20010119
  7. ALDACTONE [Concomitant]
     Route: 048
     Dates: start: 20010122
  8. CARVEDILOL [Concomitant]
     Route: 048
     Dates: start: 20010122
  9. LOSEC I.V. [Concomitant]
     Route: 048
     Dates: start: 20010129
  10. GAVISCON [Concomitant]
     Route: 048
     Dates: start: 20010131
  11. ASPIRIN [Concomitant]
     Dates: start: 20001101

REACTIONS (5)
  - ABDOMINAL PAIN UPPER [None]
  - ANOREXIA [None]
  - DYSPNOEA [None]
  - HYPERGLYCAEMIA [None]
  - NAUSEA [None]
